FAERS Safety Report 24644565 (Version 8)
Quarter: 2025Q1

REPORT INFORMATION
  Report Type: Spontaneous
  Country: ES (occurrence: ES)
  Receive Date: 20241121
  Receipt Date: 20250204
  Transmission Date: 20250409
  Serious: Yes (Hospitalization, Other)
  Sender: SANDOZ
  Company Number: None

PATIENT
  Age: 68 Year
  Sex: Female
  Weight: 75 kg

DRUGS (27)
  1. CARBOPLATIN [Suspect]
     Active Substance: CARBOPLATIN
     Route: 065
     Dates: start: 20130819
  2. CARBOPLATIN [Suspect]
     Active Substance: CARBOPLATIN
     Indication: Chemotherapy
     Dosage: 840 MG, QD (2323A) (|| DOSE UNIT FREQUENCY: 840 MG-MILLIGRAMS || DOSE PER DOSE: 840 MG-MILLIGRAMS ||
     Route: 065
     Dates: start: 20130701
  3. CARBOPLATIN [Suspect]
     Active Substance: CARBOPLATIN
     Route: 065
  4. CIPROFLOXACIN [Suspect]
     Active Substance: CIPROFLOXACIN
     Dosage: 1000 MG, QD (500 MG, Q12H (2049A) (|| DOSE UNIT FREQUENCY: 500 MG-MILLIGRAMS || DOSE PER DOSE: 500 M
     Route: 065
     Dates: start: 20130709, end: 20130710
  5. CIPROFLOXACIN [Suspect]
     Active Substance: CIPROFLOXACIN
     Indication: Product used for unknown indication
     Dosage: 1000 MG, QD, 500 MG, Q12H (2049A) (|| DOSE UNIT FREQUENCY: 500 MG-MILLIGRAMS || DOSE PER DOSE: 500 M
     Route: 065
     Dates: end: 20130710
  6. CIPROFLOXACIN [Suspect]
     Active Substance: CIPROFLOXACIN
     Route: 065
     Dates: start: 20130712
  7. DOCETAXEL [Suspect]
     Active Substance: DOCETAXEL
     Route: 042
     Dates: start: 20130701
  8. DOCETAXEL [Suspect]
     Active Substance: DOCETAXEL
     Indication: Chemotherapy
     Route: 042
     Dates: start: 20130701
  9. FOSFOMYCIN [Suspect]
     Active Substance: FOSFOMYCIN
     Indication: Product used for unknown indication
     Dosage: 1 G, QD (1599A) (|| DOSE UNIT FREQUENCY: 1 G-GRAMS || DOSE PER DOSE: 1 G-GRAMS || NO. OF SOCKETS PER
     Route: 065
     Dates: start: 20130704, end: 20130705
  10. METFORMIN [Suspect]
     Active Substance: METFORMIN HYDROCHLORIDE
     Indication: Diabetes mellitus
     Dosage: 850 MG, QD (1359A) (|| DOSE UNIT FREQUENCY: 850 MG-MILLIGRAMS || DOSE PER DOSE: 850 MG-MILLIGRAMS ||
     Route: 065
     Dates: start: 201211, end: 201310
  11. AMOXICILLIN\CLAVULANIC ACID [Concomitant]
     Active Substance: AMOXICILLIN\CLAVULANIC ACID
     Indication: Product used for unknown indication
     Dosage: 37.5 MG, QD (|| DOSE UNIT FREQUENCY: 37.5 MG-MILLIGRAMS || DOSE PER DOSE: 37.5 MG-MILLIGRAMS || NO.
     Route: 065
     Dates: start: 20130703, end: 20130704
  12. DOMPERIDONE [Concomitant]
     Active Substance: DOMPERIDONE
     Indication: Product used for unknown indication
     Route: 065
     Dates: start: 20130805
  13. FERROUS SULFATE ANHYDROUS [Concomitant]
     Active Substance: FERROUS SULFATE ANHYDROUS
     Indication: Product used for unknown indication
     Route: 065
     Dates: start: 20130729, end: 20130730
  14. NEUPOGEN [Concomitant]
     Active Substance: FILGRASTIM
     Route: 065
     Dates: start: 20130819, end: 20130820
  15. NEUPOGEN [Concomitant]
     Active Substance: FILGRASTIM
     Route: 065
     Dates: start: 20130820, end: 20130824
  16. NEUPOGEN [Concomitant]
     Active Substance: FILGRASTIM
     Indication: Product used for unknown indication
     Route: 065
     Dates: start: 20130805, end: 20130807
  17. PANTOPRAZOLE SODIUM [Concomitant]
     Active Substance: PANTOPRAZOLE SODIUM
     Indication: Product used for unknown indication
     Route: 065
     Dates: start: 201211
  18. ACETAMINOPHEN [Concomitant]
     Active Substance: ACETAMINOPHEN
     Indication: Product used for unknown indication
     Route: 065
     Dates: start: 201211
  19. RANITIDINE [Concomitant]
     Active Substance: RANITIDINE
     Route: 040
     Dates: start: 201211
  20. RANITIDINE [Concomitant]
     Active Substance: RANITIDINE
     Route: 040
     Dates: start: 201211
  21. RANITIDINE [Concomitant]
     Active Substance: RANITIDINE
     Route: 040
     Dates: start: 201211
  22. RANITIDINE [Concomitant]
     Active Substance: RANITIDINE
     Indication: Product used for unknown indication
     Route: 042
     Dates: start: 201211
  23. RANITIDINE [Concomitant]
     Active Substance: RANITIDINE
     Route: 065
     Dates: start: 201211
  24. SIMVASTATIN [Concomitant]
     Active Substance: SIMVASTATIN
     Indication: Product used for unknown indication
     Route: 065
     Dates: start: 201211
  25. TRASTUZUMAB [Concomitant]
     Active Substance: TRASTUZUMAB
     Indication: Breast cancer
     Dosage: 5400MG, Q3W, (1168A) (|| DOSE UNIT FREQUENCY: 600 MG-MILLIGRAMS || DOSE PER DOSE: 600 MG-MILLIGRAMS
     Route: 058
     Dates: start: 20130701, end: 20130722
  26. TRASTUZUMAB [Concomitant]
     Active Substance: TRASTUZUMAB
     Dosage: 5400 MG, Q3W, (|| DOSIS UNIDAD FRECUENCIA: 600 MG-MILIGRAMOS || DOSIS POR TOMA: 600 MG-MILIGRAMOS ||
     Route: 058
     Dates: start: 20131022
  27. TRASTUZUMAB [Concomitant]
     Active Substance: TRASTUZUMAB
     Dosage: 5400MG, Q3W, (|| DOSIS UNIDAD FRECUENCIA: 600 MG-MILIGRAMOS || DOSIS POR TOMA: 600 MG-MILIGRAMOS ||
     Route: 058
     Dates: start: 20130729, end: 20131001

REACTIONS (3)
  - Blood creatinine decreased [Unknown]
  - Diarrhoea [Recovered/Resolved]
  - Acute kidney injury [Recovered/Resolved]

NARRATIVE: CASE EVENT DATE: 20130706
